FAERS Safety Report 18314328 (Version 3)
Quarter: 2020Q4

REPORT INFORMATION
  Report Type: Spontaneous
  Country: JP (occurrence: JP)
  Receive Date: 20200925
  Receipt Date: 20201013
  Transmission Date: 20210113
  Serious: Yes (Other)
  Sender: FDA-Public Use
  Company Number: JP-PFIZER INC-2020372020

PATIENT
  Age: 92 Year

DRUGS (6)
  1. SILECE [Suspect]
     Active Substance: FLUNITRAZEPAM
     Indication: INSOMNIA
     Dosage: 2 MG, 1X/DAY
     Route: 048
  2. MUCOSOLVAN [Concomitant]
     Active Substance: AMBROXOL HYDROCHLORIDE
     Dosage: 45 MG, 1X/DAY
     Route: 048
  3. LYRICA [Suspect]
     Active Substance: PREGABALIN
     Dosage: 75 MG, 2X/DAY
     Route: 048
  4. FERROMIA [Concomitant]
     Active Substance: SODIUM FERROUS CITRATE
     Dosage: 50 MG, 2X/DAY
     Route: 048
  5. DIOVAN [Concomitant]
     Active Substance: VALSARTAN
     Indication: HYPERTENSION
     Dosage: 80 MG, 2X/DAY
     Route: 048
  6. EBRANTIL [URAPIDIL] [Concomitant]
     Active Substance: URAPIDIL
     Dosage: 15 MG, 2X/DAY
     Route: 048

REACTIONS (9)
  - Blood pressure increased [Unknown]
  - Cardiac hypertrophy [Unknown]
  - Hyperthermia malignant [Unknown]
  - Hyperhidrosis [Unknown]
  - Oedema [Unknown]
  - Tachycardia [Unknown]
  - Respiratory depression [Unknown]
  - Somnolence [Unknown]
  - Weight increased [Unknown]
